FAERS Safety Report 6611452-0 (Version None)
Quarter: 2010Q1

REPORT INFORMATION
  Report Type: 
  Country: None (occurrence: None)
  Receive Date: 20100303
  Receipt Date: 20100224
  Transmission Date: 20100710
  Serious: Yes (Other)
  Sender: FDA-Public Use
  Company Number: GB-B.I. PHARMACEUTICALS,INC./RIDGEFIELD-2010-UK-00176UK

PATIENT
  Age: 80 Year
  Sex: Male

DRUGS (7)
  1. SPIRIVA [Suspect]
     Indication: CHRONIC OBSTRUCTIVE PULMONARY DISEASE
     Dosage: 18 MCG
     Dates: start: 20100126, end: 20100128
  2. CANESTEN HC [Concomitant]
     Dosage: 60 G
  3. CLOPIDOGREL [Concomitant]
     Dosage: 75 MG
  4. FUCIDIN H [Concomitant]
     Dosage: 60 G
  5. LANSOPRAZOLE [Concomitant]
     Dosage: 15 MG
  6. SIMVASTATIN [Concomitant]
     Dosage: 20 MG
  7. SYMBICORT [Concomitant]
     Dosage: 400 MCG

REACTIONS (3)
  - DELUSIONAL PERCEPTION [None]
  - HALLUCINATION [None]
  - INSOMNIA [None]
